FAERS Safety Report 9530409 (Version 3)
Quarter: 2013Q4

REPORT INFORMATION
  Report Type: Spontaneous
  Country: JP (occurrence: JP)
  Receive Date: 20130918
  Receipt Date: 20131129
  Transmission Date: 20140711
  Serious: Yes (Death, Other)
  Sender: FDA-Public Use
  Company Number: JP-009507513-1309JPN005612

PATIENT
  Age: 65 Year
  Sex: Male
  Weight: 68 kg

DRUGS (3)
  1. TEMODAL [Suspect]
     Indication: GLIOBLASTOMA MULTIFORME
     Dosage: 75MG/SQUARE METER, 100MG QD
     Route: 048
     Dates: start: 20130731, end: 20130819
  2. BAKTAR [Suspect]
     Indication: PROPHYLAXIS
     Dosage: 1 DF, QD
     Route: 048
     Dates: start: 20130801, end: 20130820
  3. RINDERON [Suspect]
     Indication: BRAIN OEDEMA
     Dosage: 2 MG, BID
     Route: 042
     Dates: start: 20130805, end: 20130909

REACTIONS (3)
  - Disseminated intravascular coagulation [Fatal]
  - Interstitial lung disease [Fatal]
  - Hepatic function abnormal [Unknown]
